FAERS Safety Report 16383903 (Version 1)
Quarter: 2019Q2

REPORT INFORMATION
  Report Type: Spontaneous
  Country: SE (occurrence: SE)
  Receive Date: 20190603
  Receipt Date: 20190603
  Transmission Date: 20190711
  Serious: Yes (Hospitalization)
  Sender: FDA-Public Use
  Company Number: SE-PFIZER INC-2019229177

PATIENT
  Age: 7 Year
  Sex: Female

DRUGS (1)
  1. TOLTERODINE TARTRATE. [Suspect]
     Active Substance: TOLTERODINE TARTRATE
     Indication: ENURESIS
     Dosage: 8 MG, SINGLE (TAKEN DOUBLE DOSE BY MISTAKE)
     Route: 048
     Dates: start: 20190505, end: 20190505

REACTIONS (4)
  - Paraesthesia [Recovered/Resolved]
  - Product administered to patient of inappropriate age [Recovered/Resolved]
  - Tachycardia [Recovered/Resolved]
  - Myalgia [Recovered/Resolved]

NARRATIVE: CASE EVENT DATE: 20190505
